FAERS Safety Report 25057493 (Version 1)
Quarter: 2025Q1

REPORT INFORMATION
  Report Type: Spontaneous
  Country: BR (occurrence: BR)
  Receive Date: 20250310
  Receipt Date: 20250310
  Transmission Date: 20250408
  Serious: Yes (Death, Other)
  Sender: STRIDES
  Company Number: BR-STRIDES ARCOLAB LIMITED-2025SP002861

PATIENT
  Age: 7 Year

DRUGS (2)
  1. METHOTREXATE [Suspect]
     Active Substance: METHOTREXATE
     Indication: Polyarteritis nodosa
     Route: 065
  2. ETANERCEPT [Suspect]
     Active Substance: ETANERCEPT
     Indication: Polyarteritis nodosa
     Route: 065

REACTIONS (3)
  - Haemophagocytic lymphohistiocytosis [Fatal]
  - Pulmonary tuberculosis [Fatal]
  - Off label use [Unknown]

NARRATIVE: CASE EVENT DATE: 20190101
